FAERS Safety Report 4910713-0 (Version None)
Quarter: 2006Q1

REPORT INFORMATION
  Report Type: 
  Country: None (occurrence: None)
  Receive Date: 20060210
  Receipt Date: 20060210
  Transmission Date: 20060701
  Serious: No
  Sender: FDA-Public Use
  Company Number: None

PATIENT
  Age: 48 Year
  Sex: Female
  Weight: 63.5036 kg

DRUGS (13)
  1. VIOXX [Suspect]
     Indication: ARTHRITIS
     Dosage: 3 X DAILY
     Dates: start: 19990101, end: 20020101
  2. VIOXX [Suspect]
     Indication: FIBROMYALGIA
     Dosage: 3 X DAILY
     Dates: start: 19990101, end: 20020101
  3. DIFLUCAN [Concomitant]
  4. GLUTOFAC ZX [Concomitant]
  5. PAXIL [Concomitant]
  6. CEPHALEXIN [Concomitant]
  7. SARAFEM [Concomitant]
  8. ALPRAZOLAM [Concomitant]
  9. AMBIEN [Concomitant]
  10. NEXIUM [Concomitant]
  11. HYDROCODONE BITARTRATE [Concomitant]
  12. BIAXIN [Concomitant]
  13. TRIMOX [Concomitant]

REACTIONS (3)
  - ABDOMINAL PAIN UPPER [None]
  - GASTRIC DISORDER [None]
  - GASTRIC HAEMORRHAGE [None]
